FAERS Safety Report 15192334 (Version 1)
Quarter: 2018Q3

REPORT INFORMATION
  Report Type: Spontaneous
  Country: US (occurrence: US)
  Receive Date: 20180724
  Receipt Date: 20180724
  Transmission Date: 20181010
  Serious: No
  Sender: FDA-Public Use
  Company Number: US-BAUSCH-BL-2017-017321

PATIENT
  Age: 52 Year
  Sex: Male
  Weight: 65.83 kg

DRUGS (2)
  1. ISTALOL [Suspect]
     Active Substance: TIMOLOL MALEATE
     Indication: GLAUCOMA
     Dosage: ONE DROP IN EACH EYE ONCE DAILY AT BEDTIME
     Route: 047
     Dates: start: 20170508
  2. SALINE [Concomitant]
     Active Substance: SODIUM CHLORIDE
     Indication: CONTACT LENS THERAPY

REACTIONS (1)
  - Eye irritation [Recovered/Resolved]

NARRATIVE: CASE EVENT DATE: 20170508
